FAERS Safety Report 8436520 (Version 11)
Quarter: 2013Q3

REPORT INFORMATION
  Report Type: Spontaneous
  Country: US (occurrence: US)
  Receive Date: 20120301
  Receipt Date: 20130814
  Transmission Date: 20140515
  Serious: Yes (Hospitalization, Other)
  Sender: FDA-Public Use
  Company Number: US-ASTRAZENECA-2011SE24896

PATIENT
  Age: 48 Year
  Sex: Male

DRUGS (11)
  1. NEXIUM [Suspect]
     Route: 048
  2. PRILOSEC [Suspect]
     Route: 048
  3. SEROQUEL [Suspect]
     Indication: BIPOLAR DISORDER
     Route: 048
  4. SEROQUEL [Suspect]
     Indication: BIPOLAR I DISORDER
     Route: 048
  5. SEROQUEL [Suspect]
     Indication: ATTENTION DEFICIT/HYPERACTIVITY DISORDER
     Route: 048
  6. SEROQUEL [Suspect]
     Indication: BIPOLAR DISORDER
     Route: 048
  7. SEROQUEL [Suspect]
     Indication: BIPOLAR I DISORDER
     Route: 048
  8. SEROQUEL [Suspect]
     Indication: ATTENTION DEFICIT/HYPERACTIVITY DISORDER
     Route: 048
  9. ADDERAL [Concomitant]
  10. XANAX [Concomitant]
  11. PREVACID [Concomitant]

REACTIONS (28)
  - Ulcer haemorrhage [Unknown]
  - Staphylococcal infection [Unknown]
  - Gastric haemorrhage [Unknown]
  - Bipolar disorder [Unknown]
  - Sinus disorder [Unknown]
  - Impaired self-care [Unknown]
  - Decreased appetite [Unknown]
  - Gastric disorder [Unknown]
  - Gastrooesophageal reflux disease [Unknown]
  - Stress [Unknown]
  - Regurgitation [Unknown]
  - Attention deficit/hyperactivity disorder [Unknown]
  - Bipolar I disorder [Unknown]
  - Social avoidant behaviour [Unknown]
  - Adverse event [Unknown]
  - Mania [Unknown]
  - Irritability [Unknown]
  - Insomnia [Unknown]
  - Malaise [Unknown]
  - Depressed mood [Unknown]
  - Ulcer [Unknown]
  - Erosive oesophagitis [Unknown]
  - Thought blocking [Unknown]
  - Abdominal discomfort [Unknown]
  - Constipation [Unknown]
  - Drug dose omission [Unknown]
  - Off label use [Unknown]
  - Drug ineffective [Unknown]
